FAERS Safety Report 11005160 (Version 3)
Quarter: 2015Q3

REPORT INFORMATION
  Report Type: Spontaneous
  Country: US (occurrence: US)
  Receive Date: 20150409
  Receipt Date: 20150708
  Transmission Date: 20151125
  Serious: Yes (Death, Hospitalization, Other)
  Sender: FDA-Public Use
  Company Number: US-MERCK-1504USA003797

PATIENT
  Sex: Male
  Weight: 121.9 kg

DRUGS (3)
  1. JANUVIA [Suspect]
     Active Substance: SITAGLIPTIN PHOSPHATE
     Indication: TYPE 2 DIABETES MELLITUS
     Dosage: 100 MG, QD
     Route: 048
     Dates: start: 20081015, end: 20101230
  2. JANUVIA [Suspect]
     Active Substance: SITAGLIPTIN PHOSPHATE
     Dosage: 100 MG, QD
     Route: 048
     Dates: start: 20111007, end: 20121224
  3. VICTOZA [Suspect]
     Active Substance: LIRAGLUTIDE
     Indication: TYPE 2 DIABETES MELLITUS
     Dosage: 18 MG/3 ML QD
     Dates: start: 20110304, end: 20110725

REACTIONS (22)
  - Deep vein thrombosis [Unknown]
  - Metastases to bone [Unknown]
  - Metastases to liver [Unknown]
  - Intestinal haemorrhage [Unknown]
  - Hip arthroplasty [Unknown]
  - Cervical radiculopathy [Unknown]
  - Stasis dermatitis [Unknown]
  - Acute kidney injury [Recovering/Resolving]
  - Cardiac murmur [Unknown]
  - Phlebitis superficial [Unknown]
  - Anaemia [Unknown]
  - Sepsis [Unknown]
  - Hip fracture [Unknown]
  - Open reduction of fracture [Unknown]
  - Pancreatic carcinoma metastatic [Fatal]
  - Chronic obstructive pulmonary disease [Not Recovered/Not Resolved]
  - Thrombophlebitis superficial [Unknown]
  - Umbilical hernia [Unknown]
  - Sinus tachycardia [Unknown]
  - Pneumonia [Unknown]
  - Upper respiratory tract infection [Unknown]
  - Diverticulum [Unknown]

NARRATIVE: CASE EVENT DATE: 20110309
